FAERS Safety Report 5056060-0 (Version None)
Quarter: 2006Q3

REPORT INFORMATION
  Report Type: 
  Country: None (occurrence: None)
  Receive Date: 20060717
  Receipt Date: 20060706
  Transmission Date: 20061208
  Serious: Yes (Other)
  Sender: FDA-Public Use
  Company Number: S06-USA-02553-01

PATIENT
  Age: 20 Year
  Sex: Male

DRUGS (3)
  1. LEXAPRO [Suspect]
     Indication: ANXIETY
     Dosage: 10 MG QD PO
     Route: 048
     Dates: start: 20051201
  2. ASPIRIN [Concomitant]
  3. GARLIC PILLS [Concomitant]

REACTIONS (2)
  - CARDIAC VALVE DISEASE [None]
  - INSOMNIA [None]
